FAERS Safety Report 8492318-0 (Version None)
Quarter: 2012Q3

REPORT INFORMATION
  Report Type: 
  Country: None (occurrence: None)
  Receive Date: 20120706
  Receipt Date: 20120703
  Transmission Date: 20120928
  Serious: No
  Sender: FDA-Public Use
  Company Number: US-PFIZER INC-2012159383

PATIENT
  Sex: Male
  Weight: 10.884 kg

DRUGS (1)
  1. CHILDREN'S ADVIL [Suspect]
     Indication: PYREXIA
     Dosage: UNK, 4X/DAY
     Route: 048
     Dates: start: 20120701, end: 20120701

REACTIONS (1)
  - ERYTHEMA [None]
